FAERS Safety Report 25128691 (Version 1)
Quarter: 2025Q1

REPORT INFORMATION
  Report Type: Spontaneous
  Country: DE (occurrence: DE)
  Receive Date: 20250327
  Receipt Date: 20250327
  Transmission Date: 20250408
  Serious: Yes (Other)
  Sender: AUROBINDO
  Company Number: DE-EMB-M202307558-1

PATIENT
  Sex: Female
  Weight: 70 kg

DRUGS (4)
  1. DICLOFENAC [Suspect]
     Active Substance: DICLOFENAC
     Indication: Product used for unknown indication
     Route: 048
     Dates: start: 202309, end: 202309
  2. FOLIC ACID [Concomitant]
     Active Substance: FOLIC ACID
     Indication: Prophylaxis of neural tube defect
     Route: 048
  3. FERROUS SULFATE [Concomitant]
     Active Substance: FERROUS SULFATE
     Indication: Iron deficiency
     Route: 048
     Dates: start: 202307, end: 202309
  4. IRON [Concomitant]
     Active Substance: IRON
     Indication: Product used for unknown indication
     Route: 065
     Dates: start: 202309

REACTIONS (4)
  - Stillbirth [Recovered/Resolved]
  - Foetal exposure during pregnancy [Unknown]
  - Wrong product administered [Unknown]
  - Product confusion [Recovered/Resolved]

NARRATIVE: CASE EVENT DATE: 20230901
